FAERS Safety Report 6752006-5 (Version None)
Quarter: 2010Q2

REPORT INFORMATION
  Report Type: 
  Country: None (occurrence: None)
  Receive Date: 20100602
  Receipt Date: 20100525
  Transmission Date: 20101027
  Serious: Yes (Hospitalization)
  Sender: FDA-Public Use
  Company Number: JP-MERCK-1003USA04436

PATIENT
  Age: 66 Year
  Sex: Female

DRUGS (6)
  1. HYZAAR [Suspect]
     Indication: HYPERTENSION
     Route: 048
     Dates: start: 20090801, end: 20090829
  2. ENALAMERCK [Suspect]
     Indication: HYPERTENSION
     Route: 048
     Dates: end: 20090829
  3. METOPROLOL TARTRATE [Concomitant]
     Indication: HYPERTENSION
     Route: 048
  4. MICARDIS [Concomitant]
     Indication: HYPERTENSION
     Route: 048
     Dates: end: 20090801
  5. ADALAT CC [Concomitant]
     Indication: HYPERTENSION
     Route: 048
  6. VASOTEC [Concomitant]
     Indication: HYPERTENSION
     Route: 048

REACTIONS (1)
  - INAPPROPRIATE ANTIDIURETIC HORMONE SECRETION [None]
